FAERS Safety Report 7944845-X (Version None)
Quarter: 2011Q4

REPORT INFORMATION
  Report Type: 
  Country: None (occurrence: None)
  Receive Date: 20111129
  Receipt Date: 20100209
  Transmission Date: 20120403
  Serious: Yes (Other)
  Sender: FDA-Public Use
  Company Number: DK-UCBSA-006855

PATIENT
  Age: 31 Year
  Sex: Female
  Weight: 59 kg

DRUGS (2)
  1. LAMOTRIGINE [Concomitant]
  2. KEPPRA [Suspect]
     Indication: EPILEPSY
     Route: 048
     Dates: start: 20090918, end: 20100114

REACTIONS (2)
  - PRURITUS GENITAL [None]
  - STAPHYLOCOCCAL INFECTION [None]
